FAERS Safety Report 9561956 (Version 1)
Quarter: 2013Q3

REPORT INFORMATION
  Report Type: Spontaneous
  Country: US (occurrence: US)
  Receive Date: 20130927
  Receipt Date: 20130927
  Transmission Date: 20140515
  Serious: No
  Sender: FDA-Public Use
  Company Number: US-BIOGENIDEC-2013BI064551

PATIENT
  Sex: Female

DRUGS (1)
  1. TECFIDERA [Suspect]
     Indication: MULTIPLE SCLEROSIS
     Dates: start: 20130606, end: 20130708

REACTIONS (11)
  - Abdominal pain upper [Not Recovered/Not Resolved]
  - Headache [Not Recovered/Not Resolved]
  - Nausea [Not Recovered/Not Resolved]
  - Vomiting [Not Recovered/Not Resolved]
  - Neuritis cranial [Unknown]
  - Dysphagia [Unknown]
  - Memory impairment [Unknown]
  - Pain [Unknown]
  - Hyperchlorhydria [Unknown]
  - Ear pain [Unknown]
  - Pain in jaw [Unknown]
